FAERS Safety Report 14717476 (Version 2)
Quarter: 2018Q2

REPORT INFORMATION
  Report Type: Spontaneous
  Country: US (occurrence: US)
  Receive Date: 20180404
  Receipt Date: 20180511
  Transmission Date: 20180711
  Serious: Yes (Other)
  Sender: FDA-Public Use
  Company Number: US-BEH-2018089266

PATIENT
  Age: 48 Year
  Sex: Male

DRUGS (1)
  1. HIZENTRA [Suspect]
     Active Substance: HUMAN IMMUNOGLOBULIN G
     Indication: HUMORAL IMMUNE DEFECT
     Dosage: 9 G (45ML), QW
     Route: 058
     Dates: start: 20170810

REACTIONS (1)
  - Infusion site cellulitis [Unknown]

NARRATIVE: CASE EVENT DATE: 20180326
